FAERS Safety Report 7308135-0 (Version None)
Quarter: 2011Q1

REPORT INFORMATION
  Report Type: 
  Country: None (occurrence: None)
  Receive Date: 20110210
  Receipt Date: 20110131
  Transmission Date: 20110831
  Serious: Yes (Hospitalization, Other)
  Sender: FDA-Public Use
  Company Number: KV201000250

PATIENT
  Age: 50 Year
  Sex: Female
  Weight: 60.8 kg

DRUGS (13)
  1. ASPIRIN [Concomitant]
  2. NITROGLYCERIN (CLYCERYL TRINITRATE) [Concomitant]
  3. ZANTAC [Concomitant]
  4. FIORICET [Concomitant]
  5. SIMVASTATIN [Concomitant]
  6. ISOSORBIDE MONONITRATE [Suspect]
     Indication: PRINZMETAL ANGINA
     Dosage: 30 MG, QD, ORAL
     Route: 048
     Dates: start: 20070926, end: 20081001
  7. NEXIUM [Concomitant]
  8. PRO-AIR (PROCATEROL HYDROCHLORIDE) [Concomitant]
  9. GABAPENTIN [Concomitant]
  10. NORVASC [Concomitant]
  11. ALBUTEROL [Concomitant]
  12. AMITRIPTYLINE [Concomitant]
  13. ACETAMINOPHEN [Concomitant]

REACTIONS (25)
  - VISION BLURRED [None]
  - ANEURYSM [None]
  - IVTH NERVE PARALYSIS [None]
  - NASAL CONGESTION [None]
  - SPEECH DISORDER [None]
  - CORONARY ARTERY DISEASE [None]
  - HEADACHE [None]
  - VOMITING [None]
  - PALPITATIONS [None]
  - DIZZINESS [None]
  - HEMIPARESIS [None]
  - UPPER RESPIRATORY TRACT INFECTION [None]
  - DIPLOPIA [None]
  - PARAESTHESIA [None]
  - DYSPNOEA [None]
  - NAUSEA [None]
  - HYPERAESTHESIA [None]
  - HYPOAESTHESIA FACIAL [None]
  - VARICOSE VEIN [None]
  - CONFUSIONAL STATE [None]
  - HYPOTENSION [None]
  - PRODUCTIVE COUGH [None]
  - PNEUMONIA [None]
  - CHEST PAIN [None]
  - PAIN [None]
